FAERS Safety Report 4869486-2 (Version None)
Quarter: 2005Q4

REPORT INFORMATION
  Report Type: 
  Country: None (occurrence: None)
  Receive Date: 20051230
  Receipt Date: 20050202
  Transmission Date: 20060501
  Serious: Yes (Death)
  Sender: FDA-Public Use
  Company Number: US-MERCK-0502USA00254

PATIENT
  Age: 58 Year
  Sex: Male
  Weight: 86 kg

DRUGS (8)
  1. ULTRAM [Concomitant]
     Route: 065
  2. CARISOPRODOL [Concomitant]
     Route: 065
  3. FLEXERIL [Concomitant]
     Route: 048
     Dates: start: 20001214, end: 20020116
  4. PRILOSEC [Concomitant]
     Route: 048
  5. FUNGIZONE [Concomitant]
     Route: 065
  6. VIOXX [Suspect]
     Indication: ARTHRITIS
     Route: 048
     Dates: start: 20010313, end: 20020528
  7. ASACOL [Concomitant]
     Route: 065
  8. IBUPROFEN [Concomitant]
     Route: 065

REACTIONS (2)
  - INJURY [None]
  - MYOCARDIAL INFARCTION [None]
